FAERS Safety Report 13598342 (Version 3)
Quarter: 2017Q2

REPORT INFORMATION
  Report Type: Spontaneous
  Country: US (occurrence: US)
  Receive Date: 20170531
  Receipt Date: 20170628
  Transmission Date: 20170830
  Serious: Yes (Other)
  Sender: FDA-Public Use
  Company Number: US-BAYER-2017-100545

PATIENT
  Age: 32 Year
  Sex: Female
  Weight: 100.6 kg

DRUGS (1)
  1. MIRENA [Suspect]
     Active Substance: LEVONORGESTREL
     Indication: CONTRACEPTION
     Dosage: 20 MCG/24HR, CONT
     Route: 015
     Dates: start: 20170413, end: 201706

REACTIONS (3)
  - Genital haemorrhage [None]
  - Thyroid cyst [None]
  - Device dislocation [None]

NARRATIVE: CASE EVENT DATE: 20170518
